FAERS Safety Report 5972234-6 (Version None)
Quarter: 2008Q4

REPORT INFORMATION
  Report Type: 
  Country: None (occurrence: None)
  Receive Date: 20081201
  Receipt Date: 20071130
  Transmission Date: 20090506
  Serious: No
  Sender: FDA-Public Use
  Company Number: US-TEVA-165168USA

PATIENT
  Sex: Male
  Weight: 81.72 kg

DRUGS (4)
  1. SALBUTAMOL SULFATE INHALATION, 0.09 MG [Suspect]
     Indication: RESPIRATORY DISTRESS
     Dosage: 2 PUFFS AS NEEDED UP TO EVERY 4 HOURS
     Route: 048
     Dates: start: 20071004
  2. SERETIDE [Concomitant]
  3. BREVA [Concomitant]
  4. TIOTROPIUM BROMIDE [Concomitant]

REACTIONS (1)
  - DRUG INEFFECTIVE [None]
